FAERS Safety Report 21657483 (Version 1)
Quarter: 2022Q4

REPORT INFORMATION
  Report Type: Spontaneous
  Country: US (occurrence: US)
  Receive Date: 20221129
  Receipt Date: 20221129
  Transmission Date: 20230113
  Serious: No
  Sender: FDA-Public Use
  Company Number: US-TEVA-2022-US-2823875

PATIENT
  Age: 70 Year
  Sex: Female

DRUGS (2)
  1. LORAZEPAM [Suspect]
     Active Substance: LORAZEPAM
     Indication: Menopause
     Dosage: 2 DOSAGE FORMS DAILY; 0.5 MG TABLETS TO BE CUT IN HALF AND TAKE HALF A TABLET AT LEAST 4 TIMES A DAY
  2. LORAZEPAM [Suspect]
     Active Substance: LORAZEPAM
     Dosage: 1.5 DOSAGE FORMS DAILY; 0.5 MG TABLETS TO BE CUT IN HALF AND TAKE HALF A TABLET AT LEAST 3 TIMES A D

REACTIONS (8)
  - Hysterectomy [Unknown]
  - Blood oestrogen abnormal [Recovering/Resolving]
  - Adverse drug reaction [Recovered/Resolved with Sequelae]
  - Neoplasm [Recovered/Resolved with Sequelae]
  - Wrong technique in product usage process [Unknown]
  - Product dose omission in error [Unknown]
  - Wrong product administered [Unknown]
  - Product prescribing error [Unknown]
